FAERS Safety Report 4859324-6 (Version None)
Quarter: 2005Q4

REPORT INFORMATION
  Report Type: 
  Country: None (occurrence: None)
  Receive Date: 20051219
  Receipt Date: 20041115
  Transmission Date: 20060501
  Serious: No
  Sender: FDA-Public Use
  Company Number: US-GLAXOSMITHKLINE-A0533863A

PATIENT
  Age: 51 Year
  Sex: Female

DRUGS (1)
  1. NICODERM CQ [Suspect]
     Dates: start: 20041114

REACTIONS (3)
  - APPLICATION SITE PAIN [None]
  - APPLICATION SITE WARMTH [None]
  - PYREXIA [None]
